FAERS Safety Report 9383196 (Version 19)
Quarter: 2018Q3

REPORT INFORMATION
  Report Type: Report from Study
  Country: CA (occurrence: CA)
  Receive Date: 20130704
  Receipt Date: 20180918
  Transmission Date: 20181010
  Serious: Yes (Hospitalization, Other)
  Sender: FDA-Public Use
  Company Number: CA-ROCHE-1074293

PATIENT
  Age: 50 Year
  Sex: Female
  Weight: 54.09 kg

DRUGS (15)
  1. ACTEMRA [Suspect]
     Active Substance: TOCILIZUMAB
     Route: 042
     Dates: start: 20120718
  2. ACTEMRA [Suspect]
     Active Substance: TOCILIZUMAB
     Route: 042
     Dates: start: 20130827
  3. ACTEMRA [Suspect]
     Active Substance: TOCILIZUMAB
     Route: 042
     Dates: start: 20150304
  4. PREDNISONE. [Concomitant]
     Active Substance: PREDNISONE
  5. ACTONEL [Concomitant]
     Active Substance: RISEDRONATE SODIUM
  6. ARAVA [Concomitant]
     Active Substance: LEFLUNOMIDE
  7. ACTEMRA [Suspect]
     Active Substance: TOCILIZUMAB
     Route: 042
     Dates: start: 20130529
  8. ACTEMRA [Suspect]
     Active Substance: TOCILIZUMAB
     Indication: RHEUMATOID ARTHRITIS
     Dosage: DATE OF LAST DOSE: 02/MAY/2012
     Route: 042
     Dates: start: 20120208
  9. ACTEMRA [Suspect]
     Active Substance: TOCILIZUMAB
     Dosage: DATE OF MOST RECENT DOSE: 26/JUN/2013.
     Route: 042
     Dates: start: 20121108
  10. METHOTREXATE. [Concomitant]
     Active Substance: METHOTREXATE
  11. ACTEMRA [Suspect]
     Active Substance: TOCILIZUMAB
     Route: 042
     Dates: start: 20130925
  12. VAGIFEM [Concomitant]
     Active Substance: ESTRADIOL
  13. FOLIC ACID. [Concomitant]
     Active Substance: FOLIC ACID
  14. LOSEC [Concomitant]
     Active Substance: OMEPRAZOLE
  15. IMURAN [Concomitant]
     Active Substance: AZATHIOPRINE

REACTIONS (21)
  - Malaise [Unknown]
  - Infusion related reaction [Unknown]
  - Blood pressure diastolic decreased [Unknown]
  - Rheumatoid arthritis [Unknown]
  - Injection site swelling [Unknown]
  - Nasopharyngitis [Not Recovered/Not Resolved]
  - Blood pressure systolic decreased [Unknown]
  - White blood cell count decreased [Unknown]
  - Blood pressure systolic abnormal [Unknown]
  - Hypotension [Unknown]
  - Weight increased [Not Recovered/Not Resolved]
  - Blood pressure fluctuation [Unknown]
  - Pneumonia [Not Recovered/Not Resolved]
  - Bone disorder [Recovering/Resolving]
  - Drug ineffective [Unknown]
  - Leukopenia [Unknown]
  - Infection [Unknown]
  - Hypotension [Unknown]
  - Pharyngitis [Unknown]
  - Ear infection [Unknown]
  - Lower respiratory tract infection [Recovering/Resolving]

NARRATIVE: CASE EVENT DATE: 20120511
